FAERS Safety Report 23655188 (Version 2)
Quarter: 2024Q1

REPORT INFORMATION
  Report Type: Spontaneous
  Country: US (occurrence: US)
  Receive Date: 20240320
  Receipt Date: 20240328
  Transmission Date: 20240410
  Serious: No
  Sender: FDA-Public Use
  Company Number: US-INCYTE CORPORATION-2024IN002720

PATIENT

DRUGS (1)
  1. JAKAFI [Suspect]
     Active Substance: RUXOLITINIB
     Indication: Myelodysplastic syndrome
     Dosage: 20 MILLIGRAM, BID
     Route: 048
     Dates: start: 201910

REACTIONS (4)
  - Pain [Unknown]
  - Off label use [Unknown]
  - Increased tendency to bruise [Unknown]
  - Headache [Unknown]

NARRATIVE: CASE EVENT DATE: 20191001
